FAERS Safety Report 8382651 (Version 3)
Quarter: 2015Q2

REPORT INFORMATION
  Report Type: Report from Study
  Country: US (occurrence: US)
  Receive Date: 20120201
  Receipt Date: 20150408
  Transmission Date: 20150821
  Serious: Yes (Death)
  Sender: FDA-Public Use
  Company Number: US-ROCHE-1035027

PATIENT
  Sex: Female

DRUGS (32)
  1. SYNTHROID [Concomitant]
     Active Substance: LEVOTHYROXINE SODIUM
     Route: 048
  2. ALOXI [Concomitant]
     Active Substance: PALONOSETRON HYDROCHLORIDE
     Dosage: OVER 30 SECOND
     Route: 042
  3. DIOVAN [Concomitant]
     Active Substance: VALSARTAN
     Route: 048
  4. NYSTATIN. [Concomitant]
     Active Substance: NYSTATIN
     Route: 048
  5. NEXIUM [Concomitant]
     Active Substance: ESOMEPRAZOLE MAGNESIUM
     Route: 048
  6. TAXOTERE [Concomitant]
     Active Substance: DOCETAXEL
     Route: 042
  7. PROMETHAZINE HYDROCHLORIDE. [Concomitant]
     Active Substance: PROMETHAZINE HYDROCHLORIDE
     Indication: NAUSEA
     Dosage: AS REQUIRED
     Route: 054
  8. FLUCONAZOLE. [Concomitant]
     Active Substance: FLUCONAZOLE
     Route: 048
  9. MAGIC MOUTHWASH - LIDOCAINE, DIPHENHYDRAMINE, MYLANTA [Concomitant]
     Dosage: SWISH AND SWALLOW
     Route: 048
  10. HEPARIN [Concomitant]
     Active Substance: HEPARIN SODIUM
     Dosage: 500 U
     Route: 065
  11. AREDIA [Concomitant]
     Active Substance: PAMIDRONATE DISODIUM
     Dosage: PRIOR TO CHEMO
     Route: 048
  12. LORAZEPAM. [Concomitant]
     Active Substance: LORAZEPAM
     Dosage: AS REQUIRED
     Route: 042
  13. DIPHENHYDRAMINE HYDROCHLORIDE. [Concomitant]
     Active Substance: DIPHENHYDRAMINE HYDROCHLORIDE
     Dosage: IN 50ML NORMAL SALINE OVER 20MIN
     Route: 042
  14. DEXAMETHASONE SODIUM PHOSPHATE. [Concomitant]
     Active Substance: DEXAMETHASONE SODIUM PHOSPHATE
     Dosage: BEFORE CHEMO AND REPEAT 6 HOUR BEFORE EACH CYCLE
     Route: 048
  15. TUMS [Concomitant]
     Active Substance: CALCIUM CARBONATE
     Route: 048
  16. RANITIDINE HYDROCHLORIDE. [Concomitant]
     Active Substance: RANITIDINE HYDROCHLORIDE
     Route: 042
  17. DEXAMETHASONE SODIUM PHOSPHATE. [Concomitant]
     Active Substance: DEXAMETHASONE SODIUM PHOSPHATE
     Dosage: IN 50ML NORMAL SALINE OVER 20MIN
     Route: 042
  18. PROCHLORPERAZINE MALEATE. [Concomitant]
     Active Substance: PROCHLORPERAZINE MALEATE
     Indication: NAUSEA
     Dosage: AS REQUIRED
     Route: 048
  19. PAMIDRONATE [Concomitant]
     Active Substance: PAMIDRONATE DISODIUM
     Indication: METASTASES TO BONE
     Route: 065
  20. HERCEPTIN [Suspect]
     Active Substance: TRASTUZUMAB
     Indication: BREAST CANCER FEMALE
     Route: 042
     Dates: start: 20070602
  21. HERCEPTIN [Suspect]
     Active Substance: TRASTUZUMAB
     Route: 042
     Dates: start: 20071025, end: 20071227
  22. OXYCODONE HYDROCHLORIDE. [Concomitant]
     Active Substance: OXYCODONE HYDROCHLORIDE
     Indication: PAIN
     Dosage: AS REQUIRED
     Route: 048
  23. ACETAMINOPHEN. [Concomitant]
     Active Substance: ACETAMINOPHEN
     Indication: PAIN
     Dosage: AS REQUIRED
     Route: 048
  24. BENADRYL [Concomitant]
     Active Substance: DIPHENHYDRAMINE HYDROCHLORIDE
     Route: 048
  25. CELEXA (UNITED STATES) [Concomitant]
     Route: 048
  26. PERCOCET [Concomitant]
     Active Substance: ACETAMINOPHEN\OXYCODONE HYDROCHLORIDE
     Dosage: AT 6 BEDTIME
     Route: 065
  27. HERCEPTIN [Suspect]
     Active Substance: TRASTUZUMAB
     Route: 042
     Dates: start: 20070624
  28. DECADRON [Concomitant]
     Active Substance: DEXAMETHASONE
     Dosage: PRIOR TO CHEMOTHERAPY
     Route: 048
  29. CARBOPLATIN. [Concomitant]
     Active Substance: CARBOPLATIN
     Route: 042
  30. TAXOL [Concomitant]
     Active Substance: PACLITAXEL
     Route: 042
  31. PREDNISONE. [Concomitant]
     Active Substance: PREDNISONE
     Route: 048
  32. NEULASTA [Concomitant]
     Active Substance: PEGFILGRASTIM
     Route: 042

REACTIONS (17)
  - Dizziness [Unknown]
  - Neuropathy peripheral [Unknown]
  - Weight increased [Unknown]
  - Pain [Unknown]
  - Presyncope [Unknown]
  - Metastatic neoplasm [Fatal]
  - Headache [Unknown]
  - Disease progression [Unknown]
  - Alopecia [Unknown]
  - Pain in extremity [Unknown]
  - Fatigue [Unknown]
  - Discomfort [Unknown]
  - Cholelithiasis [Unknown]
  - Pica [Unknown]
  - Pelvic pain [Unknown]
  - Osteonecrosis of jaw [Unknown]
  - Hepatic steatosis [Unknown]
